FAERS Safety Report 9692259 (Version 1)
Quarter: 2013Q4

REPORT INFORMATION
  Report Type: Spontaneous
  Country: IT (occurrence: IT)
  Receive Date: 20131118
  Receipt Date: 20131118
  Transmission Date: 20140711
  Serious: Yes (Hospitalization)
  Sender: FDA-Public Use
  Company Number: IT-BRISTOL-MYERS SQUIBB COMPANY-19800184

PATIENT
  Age: 71 Year
  Sex: Female

DRUGS (1)
  1. TAXOL [Suspect]
     Route: 042
     Dates: start: 20131106

REACTIONS (2)
  - Infusion related reaction [Recovering/Resolving]
  - Loss of consciousness [Recovering/Resolving]
